FAERS Safety Report 7302028-0 (Version None)
Quarter: 2011Q1

REPORT INFORMATION
  Report Type: 
  Country: None (occurrence: None)
  Receive Date: 20110218
  Receipt Date: 20110215
  Transmission Date: 20110831
  Serious: Yes (Other)
  Sender: FDA-Public Use
  Company Number: JP-PFIZER INC-2011032908

PATIENT
  Age: 1 Month

DRUGS (1)
  1. SULFASALAZINE [Suspect]
     Indication: COLITIS ULCERATIVE
     Route: 063

REACTIONS (3)
  - HAEMATOCHEZIA [None]
  - PYREXIA [None]
  - DRUG EXPOSURE VIA BREAST MILK [None]
